FAERS Safety Report 9472157 (Version 2)
Quarter: 2013Q3

REPORT INFORMATION
  Report Type: Spontaneous
  Country: CA (occurrence: CA)
  Receive Date: 20130823
  Receipt Date: 20130903
  Transmission Date: 20140515
  Serious: Yes (Other)
  Sender: FDA-Public Use
  Company Number: CA-ACCORD-019038

PATIENT
  Age: 63 Year
  Sex: Male

DRUGS (4)
  1. NALTREXONE [Suspect]
     Indication: ABSTAINS FROM ALCOHOL
     Dosage: ALSO TOOK LOWER DOSE OF 12.5 MG
  2. ATORVASTATIN [Concomitant]
  3. EZETIMIBE [Concomitant]
  4. ACETYLSALICYLIC ACID [Concomitant]

REACTIONS (5)
  - Euphoric mood [Recovered/Resolved]
  - Coordination abnormal [Recovered/Resolved]
  - Headache [Recovered/Resolved]
  - Impulse-control disorder [Recovered/Resolved]
  - Off label use [Unknown]
